FAERS Safety Report 23520346 (Version 5)
Quarter: 2025Q3

REPORT INFORMATION
  Report Type: Report from Study
  Country: CA (occurrence: CA)
  Receive Date: 20240214
  Receipt Date: 20250702
  Transmission Date: 20251020
  Serious: Yes (Hospitalization, Other)
  Sender: GLAXOSMITHKLINE
  Company Number: CA-GLAXOSMITHKLINE-CA2023082974

PATIENT
  Sex: Female

DRUGS (4)
  1. MEPOLIZUMAB [Suspect]
     Active Substance: MEPOLIZUMAB
     Indication: Asthma
     Dosage: 100 MG, Q4W
  2. BREO ELLIPTA [Concomitant]
     Active Substance: FLUTICASONE FUROATE\VILANTEROL TRIFENATATE
     Indication: Product used for unknown indication
     Dosage: 1 PUFF(S), QD, 200/25MCG
  3. SINGULAIR [Concomitant]
     Active Substance: MONTELUKAST SODIUM
     Indication: Product used for unknown indication
     Dosage: 10 MG, QD
  4. VENTOLIN [Concomitant]
     Active Substance: ALBUTEROL SULFATE
     Indication: Product used for unknown indication

REACTIONS (11)
  - Anaphylactic reaction [Unknown]
  - Hospitalisation [Not Recovered/Not Resolved]
  - Pneumonia [Unknown]
  - Asthma [Unknown]
  - Renal impairment [Unknown]
  - Back pain [Unknown]
  - Breath sounds abnormal [Not Recovered/Not Resolved]
  - Painful respiration [Not Recovered/Not Resolved]
  - Malaise [Unknown]
  - Oxygen saturation abnormal [Unknown]
  - Product dose omission issue [Unknown]
